FAERS Safety Report 8397651-9 (Version None)
Quarter: 2012Q2

REPORT INFORMATION
  Report Type: 
  Country: None (occurrence: None)
  Receive Date: 20120531
  Receipt Date: 20120529
  Transmission Date: 20120825
  Serious: No
  Sender: FDA-Public Use
  Company Number: US-PFIZER INC-2012129538

PATIENT
  Sex: Male

DRUGS (2)
  1. VIAGRA [Suspect]
     Dosage: 100MG CUT IN HALF
  2. VIAGRA [Suspect]
     Dosage: 50 MG, AS NEEDED
     Route: 048

REACTIONS (1)
  - HEADACHE [None]
